FAERS Safety Report 9823406 (Version 2)
Quarter: 2014Q1

REPORT INFORMATION
  Report Type: Spontaneous
  Country: IT (occurrence: IT)
  Receive Date: 20140116
  Receipt Date: 20140203
  Transmission Date: 20141002
  Serious: Yes (Hospitalization)
  Sender: FDA-Public Use
  Company Number: PHHY2014IT003996

PATIENT
  Sex: Female

DRUGS (5)
  1. DELORAZEPAM [Suspect]
     Dosage: 40 MG, UNK
     Route: 048
     Dates: start: 20130928, end: 20130929
  2. PARACETAMOL [Suspect]
     Dosage: 16000 MG, UNK
     Route: 048
     Dates: start: 20130928, end: 20130929
  3. CARDIRENE [Suspect]
     Dosage: 5440 MG, UNK
     Route: 048
     Dates: start: 20130928, end: 20130929
  4. VALDORM [Suspect]
     Dosage: 450 MG, UNK
     Route: 048
     Dates: start: 20130928, end: 20130929
  5. LYRICA [Suspect]
     Dosage: 1050 MG, UNK
     Route: 048
     Dates: start: 20130928, end: 20130929

REACTIONS (3)
  - Suicide attempt [Unknown]
  - Bradyphrenia [Unknown]
  - Speech disorder [Unknown]
